FAERS Safety Report 20946210 (Version 1)
Quarter: 2022Q2

REPORT INFORMATION
  Report Type: Spontaneous
  Country: US (occurrence: US)
  Receive Date: 20220610
  Receipt Date: 20220610
  Transmission Date: 20220721
  Serious: Yes (Other)
  Sender: FDA-Public Use
  Company Number: US-PFIZER INC-202200816201

PATIENT
  Age: 55 Year
  Sex: Female
  Weight: 52.2 kg

DRUGS (20)
  1. ALPRAZOLAM [Suspect]
     Active Substance: ALPRAZOLAM
     Dosage: UNK
  2. BACLOFEN [Suspect]
     Active Substance: BACLOFEN
     Dosage: 40 MG, DAILY HIGH DOSE
  3. CLONAZEPAM [Suspect]
     Active Substance: CLONAZEPAM
  4. GABAPENTIN [Concomitant]
     Active Substance: GABAPENTIN
  5. BUPROPION [Concomitant]
     Active Substance: BUPROPION
  6. ESCITALOPRAM [Concomitant]
     Active Substance: ESCITALOPRAM OXALATE
  7. MEMANTINE [Concomitant]
     Active Substance: MEMANTINE
  8. MODAFINIL [Concomitant]
     Active Substance: MODAFINIL
  9. LUBIPROSTONE [Concomitant]
     Active Substance: LUBIPROSTONE
  10. DALFAMPRIDINE [Concomitant]
     Active Substance: DALFAMPRIDINE
  11. ASCORBIC ACID [Concomitant]
     Active Substance: ASCORBIC ACID
  12. CEPHALEXIN [Concomitant]
     Active Substance: CEPHALEXIN
  13. CHOLECALCIFEROL [Concomitant]
     Active Substance: CHOLECALCIFEROL
  14. ACETAMINOPHEN\HYDROCODONE BITARTRATE [Concomitant]
     Active Substance: ACETAMINOPHEN\HYDROCODONE BITARTRATE
  15. OCRELIZUMAB [Concomitant]
     Active Substance: OCRELIZUMAB
  16. ONDANSETRON [Concomitant]
     Active Substance: ONDANSETRON
  17. OXYBUTYNIN [Concomitant]
     Active Substance: OXYBUTYNIN
  18. TRAZODONE [Concomitant]
     Active Substance: TRAZODONE HYDROCHLORIDE
  19. VITAMIN E [Concomitant]
     Active Substance: .ALPHA.-TOCOPHEROL
  20. DESMOPRESSIN [Concomitant]
     Active Substance: DESMOPRESSIN

REACTIONS (4)
  - Encephalopathy [Unknown]
  - Condition aggravated [Unknown]
  - Neurotoxicity [Unknown]
  - Condition aggravated [Unknown]
